FAERS Safety Report 20691757 (Version 3)
Quarter: 2022Q2

REPORT INFORMATION
  Report Type: Spontaneous
  Country: BG (occurrence: BG)
  Receive Date: 20220408
  Receipt Date: 20220427
  Transmission Date: 20220720
  Serious: Yes (Hospitalization, Other)
  Sender: FDA-Public Use
  Company Number: BG-TEVA-2022-BG-2024167

PATIENT
  Age: 55 Year
  Sex: Female

DRUGS (3)
  1. DULOXETINE HYDROCHLORIDE [Suspect]
     Active Substance: DULOXETINE HYDROCHLORIDE
     Indication: Neuralgia
     Route: 048
     Dates: start: 20220329, end: 20220330
  2. PREGABALIN [Suspect]
     Active Substance: PREGABALIN
     Route: 065
  3. NEBIVOLOL [Suspect]
     Active Substance: NEBIVOLOL
     Dosage: 5 MILLIGRAM DAILY; IN THE MORNING
     Route: 065

REACTIONS (7)
  - Seizure [Recovered/Resolved]
  - Loss of consciousness [Recovering/Resolving]
  - Confusional state [Recovering/Resolving]
  - Syncope [Recovered/Resolved]
  - Osteochondrosis [Unknown]
  - Lordosis [Unknown]
  - Vertebrobasilar insufficiency [Unknown]
